FAERS Safety Report 16652311 (Version 4)
Quarter: 2019Q4

REPORT INFORMATION
  Report Type: Spontaneous
  Country: US (occurrence: US)
  Receive Date: 20190731
  Receipt Date: 20191002
  Transmission Date: 20200122
  Serious: No
  Sender: FDA-Public Use
  Company Number: US-PFIZER INC-2019326916

PATIENT
  Age: 59 Year
  Sex: Female

DRUGS (1)
  1. IBRANCE [Suspect]
     Active Substance: PALBOCICLIB
     Indication: BREAST CANCER FEMALE
     Dosage: 125 MG, CYCLIC (TAKE 1 CAPSULE BY MOUTH DAILY FOR 21 DAYS THEN OFF 7 DAYS)
     Route: 048
     Dates: start: 20190711

REACTIONS (6)
  - Asthenia [Unknown]
  - Weight increased [Unknown]
  - Nausea [Unknown]
  - Balance disorder [Unknown]
  - Laziness [Unknown]
  - Fatigue [Unknown]
